FAERS Safety Report 8942108 (Version 2)
Quarter: 2012Q4

REPORT INFORMATION
  Report Type: 
  Country: US (occurrence: US)
  Receive Date: 20121203
  Receipt Date: 20121227
  Transmission Date: 20130627
  Serious: Yes (Other)
  Sender: FDA-Public Use
  Company Number: US-PFIZER INC-2012297940

PATIENT
  Age: 87 Year
  Sex: Female
  Weight: 74.83 kg

DRUGS (3)
  1. XALATAN [Suspect]
     Indication: GLAUCOMA
     Dosage: UNK, 1x/day
     Route: 047
  2. TIMOLOL [Concomitant]
     Dosage: UNK
  3. TOPROL XL [Concomitant]
     Indication: BLOOD PRESSURE HIGH
     Dosage: UNK

REACTIONS (3)
  - Cataract [Unknown]
  - Intraocular pressure increased [Unknown]
  - Blood cholesterol increased [Unknown]
